FAERS Safety Report 7194462-7 (Version None)
Quarter: 2010Q4

REPORT INFORMATION
  Report Type: 
  Country: None (occurrence: None)
  Receive Date: 20101223
  Receipt Date: 20101214
  Transmission Date: 20110411
  Serious: Yes (Other)
  Sender: FDA-Public Use
  Company Number: JP-SANOFI-AVENTIS-2010SA076868

PATIENT
  Sex: Male

DRUGS (2)
  1. MYSLEE [Suspect]
     Route: 048
  2. ETHANOL [Interacting]
     Indication: ALCOHOL USE
     Route: 048

REACTIONS (3)
  - ALCOHOL INTERACTION [None]
  - ALTERED STATE OF CONSCIOUSNESS [None]
  - ROAD TRAFFIC ACCIDENT [None]
